FAERS Safety Report 22071348 (Version 1)
Quarter: 2023Q1

REPORT INFORMATION
  Report Type: Spontaneous
  Country: JP (occurrence: JP)
  Receive Date: 20230307
  Receipt Date: 20230307
  Transmission Date: 20230418
  Serious: Yes (Life-Threatening, Hospitalization, Congenital Anomaly)
  Sender: FDA-Public Use
  Company Number: JP-ferring-EVA202300127FERRINGPH

PATIENT
  Sex: Female
  Weight: 3.028 kg

DRUGS (2)
  1. DINOPROSTONE [Suspect]
     Active Substance: DINOPROSTONE
     Indication: Induction of cervix ripening
     Route: 064
     Dates: start: 20210930, end: 20210930
  2. OXYTOCIN [Concomitant]
     Active Substance: OXYTOCIN
     Dosage: UNK
     Route: 064
     Dates: start: 20210930

REACTIONS (4)
  - Respiratory disorder [Unknown]
  - Osteochondrodysplasia [Not Recovered/Not Resolved]
  - Apgar score low [Recovered/Resolved]
  - Nonreassuring foetal heart rate pattern [Recovered/Resolved]

NARRATIVE: CASE EVENT DATE: 20210930
